FAERS Safety Report 8592912-2 (Version None)
Quarter: 2012Q3

REPORT INFORMATION
  Report Type: 
  Country: None (occurrence: None)
  Receive Date: 20120814
  Receipt Date: 20120809
  Transmission Date: 20120928
  Serious: Yes (Hospitalization, Other)
  Sender: FDA-Public Use
  Company Number: US-AMGEN-USASP2012037473

PATIENT
  Age: 82 Year
  Sex: Female
  Weight: 116.6 kg

DRUGS (10)
  1. ASPIRIN [Concomitant]
     Dosage: 325 MG, QD
  2. MIRALAX [Concomitant]
     Indication: CONSTIPATION
     Dosage: 17 G, PRN
     Route: 048
  3. METOPROLOL                         /00376902/ [Concomitant]
     Dosage: 25 MG, BID
  4. PROLIA [Suspect]
     Indication: OSTEOPOROSIS POSTMENOPAUSAL
     Dosage: 60 MG, Q6MO
     Route: 058
     Dates: start: 20120221
  5. MULTIVITAMIN [Concomitant]
     Dosage: UNK UNK, QD
     Route: 048
  6. TYLENOL (CAPLET) [Concomitant]
     Dosage: 325 MG, PRN
  7. ASPIRIN [Concomitant]
     Indication: CARDIOVASCULAR EVENT PROPHYLAXIS
     Dosage: 81 MG, QD
     Route: 048
  8. CALCIUM WITH VITAMIN D [Concomitant]
     Indication: SUPPLEMENTATION THERAPY
     Dosage: UNK UNK, BID
     Route: 048
  9. PRAVACHOL [Concomitant]
     Indication: HYPERCHOLESTEROLAEMIA
     Dosage: 40 MG, QHS
  10. MULTI-VITAMINS [Concomitant]

REACTIONS (14)
  - ATRIAL FIBRILLATION [None]
  - PARAESTHESIA [None]
  - DYSPNOEA [None]
  - ASTHENIA [None]
  - CHEST PAIN [None]
  - CATHETERISATION CARDIAC [None]
  - ANXIETY [None]
  - OSTEOARTHRITIS [None]
  - HYPOAESTHESIA [None]
  - DYSLIPIDAEMIA [None]
  - SUPRAVENTRICULAR EXTRASYSTOLES [None]
  - CHILLS [None]
  - CHEST DISCOMFORT [None]
  - DEPRESSED MOOD [None]
